FAERS Safety Report 17620587 (Version 1)
Quarter: 2020Q2

REPORT INFORMATION
  Report Type: Report from Study
  Country: US (occurrence: US)
  Receive Date: 20200403
  Receipt Date: 20200403
  Transmission Date: 20200713
  Serious: Yes (Other)
  Sender: FDA-Public Use
  Company Number: US-ACADIA PHARMACEUTICALS INC.-ACA-2020-PIM-001036

PATIENT
  Age: 60 Year
  Sex: Female

DRUGS (3)
  1. NUPLAZID [Suspect]
     Active Substance: PIMAVANSERIN TARTRATE
     Indication: DEPRESSION
  2. NUPLAZID [Suspect]
     Active Substance: PIMAVANSERIN TARTRATE
     Indication: DELUSIONAL DISORDER, UNSPECIFIED TYPE
     Dosage: 34 MILLIGRAM, QD
     Route: 048
     Dates: start: 20190502
  3. NUPLAZID [Suspect]
     Active Substance: PIMAVANSERIN TARTRATE
     Indication: SCHIZOAFFECTIVE DISORDER

REACTIONS (3)
  - Blood pressure decreased [Unknown]
  - Off label use [Unknown]
  - Syncope [Unknown]

NARRATIVE: CASE EVENT DATE: 20190502
